FAERS Safety Report 13731607 (Version 3)
Quarter: 2021Q4

REPORT INFORMATION
  Report Type: Spontaneous
  Country: CA (occurrence: CA)
  Receive Date: 20170707
  Receipt Date: 20211215
  Transmission Date: 20220303
  Serious: Yes (Other)
  Sender: FDA-Public Use
  Company Number: PHHY2017CA096969

PATIENT
  Age: 45 Year
  Sex: Female

DRUGS (21)
  1. NEORAL [Suspect]
     Active Substance: CYCLOSPORINE
     Indication: Transplant
     Dosage: UNK UNK, UNKNOWN
     Route: 065
  2. MYCOPHENOLATE MOFETIL [Suspect]
     Active Substance: MYCOPHENOLATE MOFETIL
     Indication: Product used for unknown indication
     Dosage: 1000 MG, BID (2 EVERY 1 DAY)
     Route: 048
  3. MYCOPHENOLATE MOFETIL [Suspect]
     Active Substance: MYCOPHENOLATE MOFETIL
     Dosage: 1000 MG, QD (1 EVERY 1 DAYS)
     Route: 048
  4. TACROLIMUS [Suspect]
     Active Substance: TACROLIMUS
     Indication: Product used for unknown indication
     Dosage: 3 MG, BID (2 EVERY 1 DAY)
     Route: 048
  5. TACROLIMUS [Suspect]
     Active Substance: TACROLIMUS
     Dosage: 2.5 MG, BID (2 EVERY 1 DAY)
     Route: 048
  6. TACROLIMUS [Suspect]
     Active Substance: TACROLIMUS
     Dosage: 3.0 MG, QD (1 EVERY 1 DAYS)
     Route: 048
  7. TACROLIMUS [Suspect]
     Active Substance: TACROLIMUS
     Dosage: 2.5 MG, QD (1 EVERY 1 DAYS)
     Route: 048
  8. DACLIZUMAB [Suspect]
     Active Substance: DACLIZUMAB
     Indication: Product used for unknown indication
     Dosage: UNK
     Route: 042
  9. DACLIZUMAB [Suspect]
     Active Substance: DACLIZUMAB
     Dosage: UNK
     Route: 042
  10. ENBREL [Suspect]
     Active Substance: ETANERCEPT
     Indication: Product used for unknown indication
     Dosage: 25 MG, UNK
     Route: 058
  11. ENBREL [Suspect]
     Active Substance: ETANERCEPT
     Dosage: 50 MG, QD (1 EVERY 1 DAY)
     Route: 058
  12. ENBREL [Suspect]
     Active Substance: ETANERCEPT
     Dosage: 25 MG, QD (1 EVERY 1 DAYS)
     Route: 058
  13. PROGRAF [Suspect]
     Active Substance: TACROLIMUS
     Indication: Product used for unknown indication
     Dosage: 2 MG, BID (2 EVERY 1 DAY)
     Route: 048
  14. PROGRAF [Suspect]
     Active Substance: TACROLIMUS
     Dosage: 3 MG, BID (2 EVERY 1 DAY)
     Route: 048
  15. PROGRAF [Suspect]
     Active Substance: TACROLIMUS
     Dosage: 3 MG, QD (1 EVERY 1 DAYS)
     Route: 048
  16. PROGRAF [Suspect]
     Active Substance: TACROLIMUS
     Dosage: 2 MG, BID (1 EVERY 1 DAY)
     Route: 048
  17. RAPAMUNE [Suspect]
     Active Substance: SIROLIMUS
     Indication: Product used for unknown indication
     Dosage: UNK
     Route: 065
  18. REMICADE [Suspect]
     Active Substance: INFLIXIMAB
     Indication: Product used for unknown indication
     Dosage: UNK
     Route: 042
  19. SULFASALAZINE [Suspect]
     Active Substance: SULFASALAZINE
     Indication: Product used for unknown indication
     Dosage: UNK
     Route: 065
  20. THYMOCYTE IMMUNE GLOBULIN NOS [Suspect]
     Active Substance: THYMOCYTE IMMUNE GLOBULIN NOS
     Indication: Product used for unknown indication
     Dosage: 60 MG/KG
     Route: 065
  21. REMICADE [Suspect]
     Active Substance: INFLIXIMAB
     Indication: Product used for unknown indication
     Dosage: UNK
     Route: 042

REACTIONS (12)
  - Loss of personal independence in daily activities [Not Recovered/Not Resolved]
  - Condition aggravated [Not Recovered/Not Resolved]
  - Ovarian cyst [Not Recovered/Not Resolved]
  - Pain [Not Recovered/Not Resolved]
  - Rheumatoid arthritis [Not Recovered/Not Resolved]
  - Sleep disorder due to general medical condition, insomnia type [Not Recovered/Not Resolved]
  - Alopecia [Not Recovered/Not Resolved]
  - Acne [Not Recovered/Not Resolved]
  - Liver function test abnormal [Not Recovered/Not Resolved]
  - Transplant dysfunction [Not Recovered/Not Resolved]
  - Transplant rejection [Not Recovered/Not Resolved]
  - Drug ineffective [Not Recovered/Not Resolved]
